FAERS Safety Report 11646567 (Version 2)
Quarter: 2015Q4

REPORT INFORMATION
  Report Type: Spontaneous
  Country: US (occurrence: US)
  Receive Date: 20151020
  Receipt Date: 20151119
  Transmission Date: 20160304
  Serious: Yes (Other)
  Sender: FDA-Public Use
  Company Number: US-ROCHE-1615557

PATIENT
  Age: 82 Year
  Sex: Male
  Weight: 68.1 kg

DRUGS (3)
  1. ESBRIET [Suspect]
     Active Substance: PIRFENIDONE
     Indication: IDIOPATHIC PULMONARY FIBROSIS
     Dosage: 3 CAPSULES THREE TIMES A DAY WITH FOOD.
     Route: 048
     Dates: start: 20150625
  2. ESBRIET [Suspect]
     Active Substance: PIRFENIDONE
     Dosage: DOSE REDUCED TO 2 CAPSULE 3 TIMES A DAY
     Route: 048
  3. ESBRIET [Suspect]
     Active Substance: PIRFENIDONE
     Route: 048
     Dates: start: 20150528

REACTIONS (8)
  - Nausea [Unknown]
  - Nightmare [Unknown]
  - Hypersensitivity [Unknown]
  - Nausea [Unknown]
  - Dyspepsia [Unknown]
  - Abdominal distension [Unknown]
  - Sunburn [Unknown]
  - Vertigo [Unknown]

NARRATIVE: CASE EVENT DATE: 20150801
